FAERS Safety Report 15707001 (Version 1)
Quarter: 2018Q4

REPORT INFORMATION
  Report Type: Spontaneous
  Country: US (occurrence: US)
  Receive Date: 20181210
  Receipt Date: 20181210
  Transmission Date: 20190205
  Serious: No
  Sender: FDA-Public Use
  Company Number: US-TEVA-2018-US-983536

PATIENT
  Sex: Female

DRUGS (1)
  1. GABAPENTIN TABLETS [Suspect]
     Active Substance: GABAPENTIN
     Indication: ANXIETY
     Dates: start: 2015

REACTIONS (3)
  - Headache [Unknown]
  - Abdominal pain upper [Unknown]
  - Product substitution issue [Unknown]

NARRATIVE: CASE EVENT DATE: 2015
